FAERS Safety Report 5786627-3 (Version None)
Quarter: 2008Q2

REPORT INFORMATION
  Report Type: 
  Country: None (occurrence: None)
  Receive Date: 20080624
  Receipt Date: 20080612
  Transmission Date: 20081010
  Serious: Yes (Disabling)
  Sender: FDA-Public Use
  Company Number: GB-PFIZER INC-2008050491

PATIENT
  Age: 59 Year
  Sex: Male

DRUGS (2)
  1. LYRICA [Suspect]
     Indication: NEUROPATHY PERIPHERAL
     Route: 048
     Dates: start: 20070501, end: 20080501
  2. AMITRIPTYLINE HCL [Concomitant]
     Route: 048

REACTIONS (7)
  - BALANCE DISORDER [None]
  - CEREBELLAR SYNDROME [None]
  - DECREASED APPETITE [None]
  - GAIT DISTURBANCE [None]
  - JOINT SWELLING [None]
  - NYSTAGMUS [None]
  - SOMNOLENCE [None]
